FAERS Safety Report 5821855-X (Version None)
Quarter: 2008Q3

REPORT INFORMATION
  Report Type: 
  Country: None (occurrence: None)
  Receive Date: 20080724
  Receipt Date: 20080711
  Transmission Date: 20090109
  Serious: Yes (Death)
  Sender: FDA-Public Use
  Company Number: NL-ROCHE-575780

PATIENT
  Age: 67 Year
  Sex: Male

DRUGS (3)
  1. OSELTAMIVIR [Suspect]
     Route: 065
  2. AMANTADINE HCL [Concomitant]
  3. ZANAMIVIR [Concomitant]
     Dosage: 3 DOSES

REACTIONS (1)
  - DRUG INEFFECTIVE [None]
